FAERS Safety Report 8234294-1 (Version None)
Quarter: 2012Q1

REPORT INFORMATION
  Report Type: 
  Country: None (occurrence: None)
  Receive Date: 20120326
  Receipt Date: 20120316
  Transmission Date: 20120608
  Serious: Yes (Other)
  Sender: FDA-Public Use
  Company Number: MX-SANOFI-AVENTIS-2012SA018722

PATIENT
  Age: 74 Year
  Sex: Female
  Weight: 140 kg

DRUGS (5)
  1. SINTROM [Concomitant]
     Indication: THROMBOSIS
     Route: 048
     Dates: start: 20120101
  2. LANTUS [Suspect]
     Indication: TYPE 2 DIABETES MELLITUS
     Route: 058
  3. IRBESARTAN + HYDROCHLOROTHIAZIDE [Suspect]
     Indication: HYPERTENSION
     Route: 048
     Dates: end: 20120101
  4. HUMALOG [Suspect]
     Indication: TYPE 2 DIABETES MELLITUS
     Dosage: DOSE: 15 IU IN MORNING, 15 IU IN AFTERNOON AND 15 IU IN NIGHT
     Route: 058
  5. IRBESARTAN + HYDROCHLOROTHIAZIDE [Suspect]
     Route: 048
     Dates: start: 20120101

REACTIONS (4)
  - INFLAMMATION [None]
  - CHEST PAIN [None]
  - HYPERTENSION [None]
  - THROMBOSIS [None]
